FAERS Safety Report 9490415 (Version 1)
Quarter: 2013Q3

REPORT INFORMATION
  Report Type: Spontaneous
  Country: FR (occurrence: FR)
  Receive Date: 20130830
  Receipt Date: 20130830
  Transmission Date: 20140515
  Serious: Yes (Hospitalization)
  Sender: FDA-Public Use
  Company Number: FR-ROCHE-1268399

PATIENT
  Age: 65 Year
  Sex: Male

DRUGS (1)
  1. AVASTIN [Suspect]
     Indication: RENAL CANCER METASTATIC
     Route: 041
     Dates: start: 20130711, end: 20130726

REACTIONS (2)
  - Confusional state [Recovered/Resolved]
  - Coma [Recovered/Resolved]
